FAERS Safety Report 5894918-0 (Version None)
Quarter: 2008Q3

REPORT INFORMATION
  Report Type: 
  Country: None (occurrence: None)
  Receive Date: 20080924
  Receipt Date: 20080915
  Transmission Date: 20090109
  Serious: Yes (Hospitalization, Other)
  Sender: FDA-Public Use
  Company Number: PHBS2008PH05706

PATIENT
  Age: 13 Year
  Sex: Female

DRUGS (11)
  1. CYCLOSPORINE [Suspect]
     Indication: RENAL TRANSPLANT
  2. CAMPATH [Suspect]
     Indication: RENAL TRANSPLANT
     Dosage: 20 MG, ONCE/SINGLE
  3. CAMPATH [Suspect]
     Dosage: 20 MG, ONCE/SINGLE
  4. METHYLPREDNISOLONE [Suspect]
     Indication: RENAL TRANSPLANT
     Dosage: 10 MG/KG, ONCE/SINGLE
  5. MYCOPHENOLATE MOFETIL [Concomitant]
     Indication: RENAL TRANSPLANT
     Dosage: 600 MG, BID
  6. ACETAMINOPHEN [Concomitant]
     Indication: RENAL TRANSPLANT
     Dosage: UNK MG/KG, UNK
  7. DIPHENHYDRAMINE HCL [Concomitant]
     Indication: RENAL TRANSPLANT
     Dosage: 1.5 MG/KG, ONCE/SINGLE
  8. ISONIAZID [Concomitant]
     Indication: RENAL TRANSPLANT
     Dosage: UNK
  9. CO-TRIMOXAZOLE [Concomitant]
     Indication: RENAL TRANSPLANT
     Dosage: UNK
  10. VALACYCLOVIR HCL [Concomitant]
     Indication: RENAL TRANSPLANT
     Dosage: UNK
  11. NYSTATIN [Concomitant]
     Indication: RENAL TRANSPLANT
     Dosage: UNK

REACTIONS (7)
  - DIARRHOEA [None]
  - IMPLANT SITE EFFUSION [None]
  - INFECTION [None]
  - LYMPHOCYTE COUNT DECREASED [None]
  - NEUTROPENIA [None]
  - PYREXIA [None]
  - THERAPEUTIC ASPIRATION [None]
